FAERS Safety Report 13830525 (Version 1)
Quarter: 2017Q3

REPORT INFORMATION
  Report Type: Spontaneous
  Country: US (occurrence: US)
  Receive Date: 20170803
  Receipt Date: 20170803
  Transmission Date: 20171127
  Serious: No
  Sender: FDA-Public Use
  Company Number: US-SA-2017SA115237

PATIENT
  Sex: Female

DRUGS (3)
  1. PRALUENT [Suspect]
     Active Substance: ALIROCUMAB
     Indication: BLOOD CHOLESTEROL INCREASED
     Dosage: ISSUE GETTING IT REFILLED SO TOOK IT 3 WKS AFTER HER LAST DOSE INSTEAD OF 2 WK
     Route: 058
     Dates: start: 20170614
  2. PRALUENT [Suspect]
     Active Substance: ALIROCUMAB
     Indication: BLOOD CHOLESTEROL INCREASED
     Dosage: ISSUE GETTING IT REFILLED SO TOOK IT 3 WKS AFTER HER LAST DOSE INSTEAD OF 2 WK
     Route: 058
     Dates: start: 2016, end: 201705
  3. ALIROCUMAB PREFILLED PEN [Concomitant]
     Active Substance: ALIROCUMAB
     Indication: BLOOD CHOLESTEROL INCREASED
     Dates: start: 2016, end: 201705

REACTIONS (2)
  - Rash erythematous [Unknown]
  - Pruritus [Not Recovered/Not Resolved]

NARRATIVE: CASE EVENT DATE: 20170615
